FAERS Safety Report 26142628 (Version 1)
Quarter: 2025Q4

REPORT INFORMATION
  Report Type: Spontaneous
  Country: KR (occurrence: KR)
  Receive Date: 20251211
  Receipt Date: 20251211
  Transmission Date: 20260118
  Serious: Yes (Death)
  Sender: BEIGENE
  Company Number: KR-BEONEMEDICINES-BGN-2025-022240

PATIENT
  Age: 59 Year
  Sex: Male

DRUGS (2)
  1. TEVIMBRA [Suspect]
     Active Substance: TISLELIZUMAB-JSGR
     Indication: Oesophageal squamous cell carcinoma
     Dosage: 200 MILLIGRAM
  2. TEVIMBRA [Suspect]
     Active Substance: TISLELIZUMAB-JSGR
     Dosage: 200 MILLIGRAM

REACTIONS (1)
  - Oesophageal carcinoma [Fatal]
